FAERS Safety Report 9341742 (Version 1)
Quarter: 2013Q2

REPORT INFORMATION
  Report Type: Spontaneous
  Country: GB (occurrence: GB)
  Receive Date: 20130611
  Receipt Date: 20130611
  Transmission Date: 20140414
  Serious: Yes (Death)
  Sender: FDA-Public Use
  Company Number: GB-CELGENEUS-167-50794-13060503

PATIENT
  Sex: Male
  Weight: 82 kg

DRUGS (4)
  1. VIDAZA [Suspect]
     Indication: MYELODYSPLASTIC SYNDROME
     Dosage: 75 MILLIGRAM/SQ. METER
     Route: 065
     Dates: start: 20120410, end: 20120418
  2. VIDAZA [Suspect]
     Dosage: 75 MILLIGRAM/SQ. METER
     Route: 065
     Dates: start: 201201, end: 201203
  3. TRANEXAMIC ACID [Concomitant]
     Indication: MYELODYSPLASTIC SYNDROME
     Dosage: 1500 MILLIGRAM
     Route: 065
  4. TAMSULOSIN [Concomitant]
     Indication: PROSTATISM
     Dosage: 400 MILLIGRAM
     Route: 065

REACTIONS (1)
  - Leukaemia [Fatal]
